FAERS Safety Report 17552879 (Version 1)
Quarter: 2020Q1

REPORT INFORMATION
  Report Type: Spontaneous
  Country: CA (occurrence: CA)
  Receive Date: 20200317
  Receipt Date: 20200317
  Transmission Date: 20200409
  Serious: Yes (Hospitalization)
  Sender: FDA-Public Use
  Company Number: NVSC2020CA073220

PATIENT
  Age: 47 Year
  Sex: Female

DRUGS (12)
  1. ILARIS [Suspect]
     Active Substance: CANAKINUMAB
     Dosage: 150 MG
     Route: 042
  2. ILARIS [Suspect]
     Active Substance: CANAKINUMAB
     Dosage: 150 MG
     Route: 030
  3. ILARIS [Suspect]
     Active Substance: CANAKINUMAB
     Dosage: 300 MG
     Route: 058
  4. ILARIS [Suspect]
     Active Substance: CANAKINUMAB
     Dosage: 300 MG
     Route: 058
  5. ONDANSETRON [Suspect]
     Active Substance: ONDANSETRON
     Dosage: 1 DF, QD
     Route: 048
  6. PREDNISONE. [Concomitant]
     Active Substance: PREDNISONE
     Indication: PRODUCT USED FOR UNKNOWN INDICATION
     Dosage: UNK
     Route: 065
  7. ILARIS [Suspect]
     Active Substance: CANAKINUMAB
     Indication: FAMILIAL COLD AUTOINFLAMMATORY SYNDROME
     Dosage: 300 MG
     Route: 058
  8. ILARIS [Suspect]
     Active Substance: CANAKINUMAB
     Dosage: 300 MG
     Route: 058
  9. ILARIS [Suspect]
     Active Substance: CANAKINUMAB
     Dosage: 300 MG
     Route: 030
  10. TELMISARTAN. [Suspect]
     Active Substance: TELMISARTAN
     Indication: PRODUCT USED FOR UNKNOWN INDICATION
     Dosage: 30 MG
     Route: 065
  11. ONDANSETRON [Suspect]
     Active Substance: ONDANSETRON
     Indication: NAUSEA
     Dosage: 1 DF, QD
     Route: 065
  12. ILARIS [Suspect]
     Active Substance: CANAKINUMAB
     Dosage: 300 MG
     Route: 058

REACTIONS (17)
  - Adrenal disorder [Recovering/Resolving]
  - Body temperature increased [Recovering/Resolving]
  - Anxiety [Recovering/Resolving]
  - Nausea [Recovering/Resolving]
  - Ear infection [Recovering/Resolving]
  - Weight decreased [Recovering/Resolving]
  - Colitis [Recovering/Resolving]
  - Headache [Recovering/Resolving]
  - Nervousness [Recovering/Resolving]
  - Familial cold autoinflammatory syndrome [Recovering/Resolving]
  - Fatigue [Recovering/Resolving]
  - Diarrhoea [Recovering/Resolving]
  - Insomnia [Recovering/Resolving]
  - White blood cell count decreased [Recovering/Resolving]
  - Abdominal pain [Recovering/Resolving]
  - Malaise [Recovering/Resolving]
  - Vomiting [Recovering/Resolving]
